FAERS Safety Report 13898426 (Version 2)
Quarter: 2017Q4

REPORT INFORMATION
  Report Type: Other
  Country: IT (occurrence: IT)
  Receive Date: 20170824
  Receipt Date: 20171026
  Transmission Date: 20180320
  Serious: Yes (Other)
  Sender: FDA-Public Use
  Company Number: IT-APOTEX-2017AP017035

PATIENT
  Age: 23 Year
  Sex: Male

DRUGS (1)
  1. CLARITROMICINA DOC GENERICI [Suspect]
     Active Substance: CLARITHROMYCIN
     Indication: PROSTATITIS
     Dosage: UNK
     Route: 065

REACTIONS (5)
  - Dyspnoea [Unknown]
  - Hypersensitivity [Unknown]
  - Pharyngeal oedema [Unknown]
  - Tonsillar hypertrophy [Unknown]
  - Localised oedema [Unknown]

NARRATIVE: CASE EVENT DATE: 20170726
